FAERS Safety Report 7983094-6 (Version None)
Quarter: 2011Q4

REPORT INFORMATION
  Report Type: 
  Country: None (occurrence: None)
  Receive Date: 20111215
  Receipt Date: 20111213
  Transmission Date: 20120403
  Serious: Yes (Life-Threatening, Hospitalization, Other)
  Sender: FDA-Public Use
  Company Number: AU-B.I. PHARMACEUTICALS,INC./RIDGEFIELD-2011-AU-01770AU

PATIENT
  Sex: Male

DRUGS (8)
  1. PRADAXA [Suspect]
     Indication: CEREBROVASCULAR ACCIDENT PROPHYLAXIS
     Dosage: 220 MG
     Dates: start: 20110727, end: 20110928
  2. RAMIPRIL [Concomitant]
  3. DIGOXIN [Concomitant]
  4. LASIX [Concomitant]
  5. PRILOSEC [Concomitant]
  6. SOTALOL HCL [Concomitant]
  7. LIPITOR [Concomitant]
  8. METFORMIN HCL [Concomitant]

REACTIONS (4)
  - PANCREATITIS [None]
  - ACUTE HEPATIC FAILURE [None]
  - CHOLELITHIASIS [None]
  - PANCREATIC CARCINOMA [None]
